FAERS Safety Report 25642657 (Version 1)
Quarter: 2025Q3

REPORT INFORMATION
  Report Type: Report from Study
  Country: BR (occurrence: BR)
  Receive Date: 20250805
  Receipt Date: 20250805
  Transmission Date: 20251021
  Serious: Yes (Hospitalization)
  Sender: BIOGEN
  Company Number: BR-BIOGEN-2025BI01319110

PATIENT
  Sex: Female
  Weight: 90 kg

DRUGS (2)
  1. TYSABRI [Suspect]
     Active Substance: NATALIZUMAB
     Indication: Multiple sclerosis
     Route: 050
     Dates: end: 202501
  2. TYSABRI [Suspect]
     Active Substance: NATALIZUMAB
     Dosage: 1 VIAL
     Route: 050
     Dates: start: 202501

REACTIONS (2)
  - Hypercoagulation [Recovered/Resolved]
  - Cough [Recovered/Resolved]
